FAERS Safety Report 5441222-0 (Version None)
Quarter: 2007Q3

REPORT INFORMATION
  Report Type: 
  Country: None (occurrence: None)
  Receive Date: 20070901
  Receipt Date: 20070822
  Transmission Date: 20080115
  Serious: Yes (Hospitalization, Other)
  Sender: FDA-Public Use
  Company Number: US-PFIZER INC-2007070388

PATIENT
  Sex: Female
  Weight: 52.2 kg

DRUGS (5)
  1. NEURONTIN [Suspect]
     Indication: PELVIC PAIN
     Dates: start: 20061001, end: 20070819
  2. LUPRON [Concomitant]
     Dates: start: 20060901, end: 20070604
  3. PETIBELLE FILMTABLETTEN [Concomitant]
  4. TOPAMAX [Concomitant]
  5. LEXAPRO [Concomitant]

REACTIONS (14)
  - AGITATION [None]
  - APPENDICITIS [None]
  - CHEST PAIN [None]
  - DRUG INEFFECTIVE [None]
  - DRUG WITHDRAWAL SYNDROME [None]
  - DYSKINESIA [None]
  - ENDOMETRIOSIS [None]
  - FEELING ABNORMAL [None]
  - MALAISE [None]
  - NAUSEA [None]
  - PALLOR [None]
  - PELVIC PAIN [None]
  - RESTLESSNESS [None]
  - VOMITING [None]
